FAERS Safety Report 21417017 (Version 2)
Quarter: 2022Q4

REPORT INFORMATION
  Report Type: Spontaneous
  Country: US (occurrence: US)
  Receive Date: 20221006
  Receipt Date: 20221122
  Transmission Date: 20230113
  Serious: No
  Sender: FDA-Public Use
  Company Number: US-PFIZER INC-202201201508

PATIENT
  Age: 48 Year
  Sex: Female
  Weight: 56.689 kg

DRUGS (3)
  1. PAXLOVID [Suspect]
     Active Substance: NIRMATRELVIR\RITONAVIR
     Indication: COVID-19 treatment
     Dosage: [PF-07321332 300MG]/[RITONAVIR 100 MG]; 2X/DAY
     Dates: start: 20220928, end: 20220930
  2. MUCINEX SINUS [OXYMETAZOLINE HYDROCHLORIDE] [Concomitant]
     Dosage: UNK
     Dates: start: 20220927, end: 20220929
  3. SUDAFED PE CONGESTION [Concomitant]
     Active Substance: PHENYLEPHRINE HYDROCHLORIDE
     Dosage: UNK
     Dates: start: 20220926, end: 20220928

REACTIONS (4)
  - Dyspnoea [Recovered/Resolved]
  - Diarrhoea [Recovered/Resolved]
  - Dysgeusia [Recovered/Resolved]
  - Aphonia [Recovered/Resolved]

NARRATIVE: CASE EVENT DATE: 20220928
